FAERS Safety Report 10230177 (Version 1)
Quarter: 2014Q2

REPORT INFORMATION
  Report Type: Spontaneous
  Country: US (occurrence: None)
  Receive Date: 20140610
  Receipt Date: 20140610
  Transmission Date: 20141212
  Serious: No
  Sender: FDA-Public Use
  Company Number: None

PATIENT
  Age: 48 Year
  Sex: Female
  Weight: 61.24 kg

DRUGS (1)
  1. DULOXETINE [Suspect]
     Indication: DEPRESSION
     Dosage: 1 PILL ONCE DAILY TAKEN BY MOUTH
     Route: 048
     Dates: start: 20140201, end: 20140301

REACTIONS (6)
  - Paraesthesia [None]
  - Drug withdrawal syndrome [None]
  - Dizziness [None]
  - Product substitution issue [None]
  - Product substitution issue [None]
  - Product quality issue [None]
